FAERS Safety Report 8938019 (Version 1)
Quarter: 2012Q4

REPORT INFORMATION
  Report Type: Spontaneous
  Country: CA (occurrence: None)
  Receive Date: 20121121
  Receipt Date: 20121121
  Transmission Date: 20130627
  Serious: Yes (Other)
  Sender: FDA-Public Use
  Company Number: 219402

PATIENT
  Sex: Male
  Weight: 269 kg

DRUGS (1)
  1. INNOHEP (TINZAPARIN SODIUM) [Suspect]
     Indication: VENOUS THROMBOEMBOLISM
     Route: 058
     Dates: start: 20121022, end: 20121101

REACTIONS (3)
  - Renal failure [None]
  - Intentional overdose [None]
  - Incorrect drug administration duration [None]
